FAERS Safety Report 8255305-3 (Version None)
Quarter: 2012Q2

REPORT INFORMATION
  Report Type: 
  Country: None (occurrence: None)
  Receive Date: 20120403
  Receipt Date: 20120323
  Transmission Date: 20120825
  Serious: Yes (Hospitalization, Other)
  Sender: FDA-Public Use
  Company Number: US-BRISTOL-MYERS SQUIBB COMPANY-16376048

PATIENT
  Age: 15 Year
  Sex: Male
  Weight: 110 kg

DRUGS (11)
  1. CYTARABINE [Suspect]
     Indication: ACUTE LYMPHOCYTIC LEUKAEMIA
     Dosage: LAST DOSE ON 24NOV09; 60 MG IT:15OCT09
     Route: 042
     Dates: start: 20090408
  2. ONCASPAR [Suspect]
     Indication: ACUTE LYMPHOCYTIC LEUKAEMIA
     Dosage: LATS DOSE:05OCT2009
     Dates: start: 20090408
  3. CYCLOPHOSPHAMIDE [Suspect]
     Indication: ACUTE LYMPHOCYTIC LEUKAEMIA
     Dosage: LAST DOSE ON 27NOV09. 2352MG:05OCT2009
     Route: 042
     Dates: start: 20090408
  4. METHOTREXATE [Suspect]
     Indication: ACUTE LYMPHOCYTIC LEUKAEMIA
     Dosage: LAST DOSE ON 09NOV2009: 24000 MG IV MTX
     Route: 042
     Dates: start: 20090408
  5. DAUNORUBICIN HCL [Suspect]
     Indication: ACUTE LYMPHOCYTIC LEUKAEMIA
     Dosage: LAST DOSE:02OCT2009
     Dates: start: 20090408
  6. VINCRISTINE SULFATE [Suspect]
     Indication: ACUTE LYMPHOCYTIC LEUKAEMIA
     Dosage: LAST DOSE:15OCT2009
     Dates: start: 20090408
  7. ETOPOSIDE [Suspect]
     Indication: ACUTE LYMPHOCYTIC LEUKAEMIA
     Dosage: LAST DOSE ON 27NOV09.
     Route: 042
     Dates: start: 20090408
  8. ASPARAGINASE [Suspect]
     Indication: ACUTE LYMPHOCYTIC LEUKAEMIA
     Dosage: LAST DOSE ON 06JAN10.
     Dates: start: 20090408
  9. DEXAMETHASONE [Suspect]
     Dosage: LAST DOSE:21OCT2009
     Dates: start: 20090408
  10. SPRYCEL [Suspect]
     Indication: ACUTE LYMPHOCYTIC LEUKAEMIA
     Dosage: LAST DOSE ON 27DEC09. 1820MG:14OCT2009
     Route: 048
     Dates: start: 20090408
  11. HYDROCORTISONE [Suspect]
     Indication: ACUTE LYMPHOCYTIC LEUKAEMIA
     Dosage: LAST DOSE ON 24NOV2009, 15OCT2009
     Dates: start: 20090408

REACTIONS (2)
  - HYPOKALAEMIA [None]
  - HYPERSENSITIVITY [None]
